FAERS Safety Report 4746858-8 (Version None)
Quarter: 2005Q3

REPORT INFORMATION
  Report Type: 
  Country: None (occurrence: None)
  Receive Date: 20050817
  Receipt Date: 20050811
  Transmission Date: 20060218
  Serious: Yes (Hospitalization)
  Sender: FDA-Public Use
  Company Number: 200516181US

PATIENT
  Sex: Female

DRUGS (1)
  1. LANTUS [Suspect]
     Indication: DIABETES MELLITUS
     Dosage: DOSE UNIT: UNITS
     Route: 058
     Dates: start: 20041201, end: 20050201

REACTIONS (5)
  - CEREBROVASCULAR ACCIDENT [None]
  - DIALYSIS [None]
  - PNEUMONIA [None]
  - RENAL FAILURE [None]
  - THROMBOSIS [None]
